FAERS Safety Report 10179848 (Version 1)
Quarter: 2014Q2

REPORT INFORMATION
  Report Type: Spontaneous
  Country: US (occurrence: US)
  Receive Date: 20140519
  Receipt Date: 20140519
  Transmission Date: 20141212
  Serious: No
  Sender: FDA-Public Use
  Company Number: US-AMGEN INC.-USASP2013068540

PATIENT
  Age: 80 Year
  Sex: Female

DRUGS (13)
  1. PROLIA [Suspect]
     Indication: OSTEOPOROSIS POSTMENOPAUSAL
     Dosage: UNK
     Route: 065
     Dates: start: 2013
  2. ASACOL [Concomitant]
  3. TYLENOL                            /00020001/ [Concomitant]
  4. CODEINE [Concomitant]
  5. LOMOTIL                            /00034001/ [Concomitant]
  6. B12                                /00056201/ [Concomitant]
  7. IRON [Concomitant]
  8. MULTIVITAMIN                       /00097801/ [Concomitant]
  9. ATENOLOL [Concomitant]
  10. CALCIUM [Concomitant]
  11. VITAMIN D                          /00107901/ [Concomitant]
  12. ROPINIROLE [Concomitant]
  13. LEVOXYL [Concomitant]

REACTIONS (1)
  - Myalgia [Unknown]
